FAERS Safety Report 16132828 (Version 2)
Quarter: 2019Q3

REPORT INFORMATION
  Report Type: Spontaneous
  Country: US (occurrence: US)
  Receive Date: 20190329
  Receipt Date: 20190709
  Transmission Date: 20191004
  Serious: No
  Sender: FDA-Public Use
  Company Number: US-PFIZER INC-2019129204

PATIENT
  Age: 4 Year
  Sex: Female

DRUGS (1)
  1. EUCRISA [Suspect]
     Active Substance: CRISABOROLE
     Indication: ECZEMA
     Dosage: UNK, TWICE DAILY (TO BE APPLIED TO AFFECTED AREAS TWICE DAILY)
     Route: 061
     Dates: start: 201812

REACTIONS (2)
  - Application site pain [Recovered/Resolved]
  - Application site exfoliation [Recovered/Resolved]
